FAERS Safety Report 22196701 (Version 4)
Quarter: 2023Q2

REPORT INFORMATION
  Report Type: Spontaneous
  Country: JP (occurrence: None)
  Receive Date: 20230411
  Receipt Date: 20230629
  Transmission Date: 20230721
  Serious: Yes (Death, Hospitalization, Other)
  Sender: FDA-Public Use
  Company Number: 2023A082014

PATIENT
  Age: 87 Year
  Sex: Female
  Weight: 41 kg

DRUGS (13)
  1. ONDEXXYA [Suspect]
     Active Substance: ANDEXANET ALFA
     Indication: Cerebral haemorrhage
     Dosage: METHOD A: INTRAVENOUS ADMINISTRATION OF 400 MG 30 MG/MIN FOLLOWED BY 480 MG 4 MG/MIN FOR 2 HRS8...
     Route: 042
     Dates: start: 20230401, end: 20230401
  2. NEXIUM [Suspect]
     Active Substance: ESOMEPRAZOLE MAGNESIUM
     Dosage: PRESCRIBED AT ANOTHER HOSPITAL
     Route: 048
     Dates: end: 20230401
  3. BUFFERIN [Concomitant]
     Active Substance: ASPIRIN
     Route: 048
     Dates: end: 20230401
  4. PRAVASTATIN SODIUM [Concomitant]
     Active Substance: PRAVASTATIN SODIUM
     Dosage: PRESCRIBED AT ANOTHER HOSPITAL
     Route: 048
     Dates: end: 20230401
  5. FUROSEMIDE [Concomitant]
     Active Substance: FUROSEMIDE
     Dosage: PRESCRIBED AT ANOTHER HOSPITAL
     Route: 048
     Dates: end: 20230401
  6. BETAHISTINE MESILATE [Concomitant]
     Active Substance: BETAHISTINE MESILATE
     Dosage: PRESCRIBED AT ANOTHER HOSPITAL
     Route: 048
     Dates: end: 20230401
  7. ELIQUIS [Concomitant]
     Active Substance: APIXABAN
     Indication: Pulmonary embolism
     Dosage: PRESCRIBED AT ANOTHER HOSPITAL
     Route: 048
     Dates: start: 202210, end: 20230401
  8. ASPIRIN [Concomitant]
     Active Substance: ASPIRIN
     Indication: Carotid artery stenosis
     Dosage: DOSE UNKNOWN
     Route: 048
  9. HEPARINOID [Concomitant]
     Dosage: 3000 IU
  10. ASPIRIN [Concomitant]
     Active Substance: ASPIRIN
     Dosage: PRESCRIBED AT ANOTHER HOSPITAL
  11. IOPAMIDOL [Concomitant]
     Active Substance: IOPAMIDOL
     Dosage: DOSE UNKNOWN
     Dates: start: 20230401
  12. PROHANCE [Concomitant]
     Active Substance: GADOTERIDOL
     Dosage: DOSE UNKNOWN
     Route: 042
     Dates: start: 20230401
  13. SODIUM CHLORIDE [Concomitant]
     Active Substance: SODIUM CHLORIDE
     Dosage: DOSE UNKNOWN
     Dates: start: 20230401

REACTIONS (2)
  - Cerebral infarction [Fatal]
  - Meningioma [Unknown]

NARRATIVE: CASE EVENT DATE: 20230401
